FAERS Safety Report 7842882-7 (Version None)
Quarter: 2011Q4

REPORT INFORMATION
  Report Type: 
  Country: None (occurrence: None)
  Receive Date: 20111025
  Receipt Date: 20111024
  Transmission Date: 20120403
  Serious: Yes (Death, Other)
  Sender: FDA-Public Use
  Company Number: JP-PFIZER INC-2011256168

PATIENT
  Age: 6 Year
  Sex: Female

DRUGS (1)
  1. GABAPENTIN [Suspect]
     Dosage: 400 MG/DAY
     Route: 048
     Dates: end: 20100401

REACTIONS (2)
  - DISSEMINATED INTRAVASCULAR COAGULATION [None]
  - PANCREATITIS ACUTE [None]
